FAERS Safety Report 6701634-1 (Version None)
Quarter: 2010Q2

REPORT INFORMATION
  Report Type: 
  Country: None (occurrence: None)
  Receive Date: 20100429
  Receipt Date: 20100414
  Transmission Date: 20101027
  Serious: Yes (Other)
  Sender: FDA-Public Use
  Company Number: US-SANOFI-AVENTIS-2009SA000613

PATIENT
  Sex: Male

DRUGS (8)
  1. MULTAQ [Suspect]
     Indication: ATRIAL FLUTTER
     Route: 048
     Dates: start: 20090831, end: 20090918
  2. MULTAQ [Suspect]
     Route: 048
     Dates: start: 20090918, end: 20091016
  3. MULTAQ [Suspect]
     Route: 048
     Dates: start: 20091016
  4. KLOR-CON [Concomitant]
     Route: 048
  5. COUMADIN [Concomitant]
     Route: 048
  6. LOPRESSOR [Concomitant]
     Route: 048
  7. LITHIUM CARBONATE [Concomitant]
     Route: 048
  8. PROZAC [Concomitant]
     Route: 048

REACTIONS (5)
  - CARDIAC FAILURE CONGESTIVE [None]
  - DYSPNOEA [None]
  - GENERALISED OEDEMA [None]
  - RALES [None]
  - WEIGHT INCREASED [None]
